FAERS Safety Report 12980135 (Version 1)
Quarter: 2016Q4

REPORT INFORMATION
  Report Type: Report from Study
  Country: CA (occurrence: CA)
  Receive Date: 20161128
  Receipt Date: 20161128
  Transmission Date: 20170207
  Serious: Yes (Hospitalization)
  Sender: FDA-Public Use
  Company Number: CA-PFIZER INC-1538411

PATIENT
  Age: 81 Year
  Sex: Female
  Weight: 72.5 kg

DRUGS (32)
  1. VINCRISTINE SULFATE. [Suspect]
     Active Substance: VINCRISTINE SULFATE
     Indication: B-CELL LYMPHOMA
     Dosage: 2 MG, EVERY 3 WEEKS
     Route: 040
     Dates: start: 20121031
  2. SOLU-MEDROL [Concomitant]
     Active Substance: METHYLPREDNISOLONE SODIUM SUCCINATE
     Indication: NAUSEA
     Dosage: NOT REPORTED, NOT REPORTED
     Dates: start: 20121031
  3. COLACE [Concomitant]
     Active Substance: DOCUSATE SODIUM
     Dosage: NOT REPORTED, NOT REPORTED
     Dates: start: 20121112, end: 20121114
  4. ALLOPURINOL. [Concomitant]
     Active Substance: ALLOPURINOL
     Dosage: NOT REPORTED, NOT REPORTED
     Dates: start: 20121030
  5. LEVOTHYROXINE. [Concomitant]
     Active Substance: LEVOTHYROXINE
     Dosage: NOT REPORTED, NOT REPORTED
     Dates: start: 20121113, end: 20121114
  6. MORPHINE [Concomitant]
     Active Substance: MORPHINE
     Indication: GOUT
     Dosage: UNK
     Dates: start: 20121020
  7. FLUCONAZOLE. [Concomitant]
     Active Substance: FLUCONAZOLE
     Indication: INFECTION PROPHYLAXIS
     Dosage: NOT REPORTED, NOT REPORTED
     Dates: start: 20121112, end: 20121112
  8. PIPERACILLIN/TAZOBACTAM [Concomitant]
     Active Substance: PIPERACILLIN SODIUM\TAZOBACTAM SODIUM
     Indication: INFECTION PROPHYLAXIS
     Dosage: NOT REPORTED, NOT REPORTED
     Dates: start: 20121112, end: 20121113
  9. COLACE [Concomitant]
     Active Substance: DOCUSATE SODIUM
     Indication: CONSTIPATION
     Dosage: NOT REPORTED, NOT REPORTED
     Dates: start: 20101017
  10. SYNTHROID [Concomitant]
     Active Substance: LEVOTHYROXINE SODIUM
     Indication: HYPOTHYROIDISM
     Dosage: NOT REPORTED, NOT REPORTED
  11. CYCLOPHOSPHAMIDE. [Suspect]
     Active Substance: CYCLOPHOSPHAMIDE
     Indication: B-CELL LYMPHOMA
     Dosage: 1275 MG,
     Route: 042
     Dates: start: 20121031
  12. OMEPRAZOLE. [Concomitant]
     Active Substance: OMEPRAZOLE
     Indication: GASTROOESOPHAGEAL REFLUX DISEASE
     Dosage: NOT REPORTED, NOT REPORTED
  13. CODEINE [Concomitant]
     Active Substance: CODEINE
     Indication: ARTHRALGIA
     Dosage: NOT REPORTED, NOT REPORTED
     Dates: start: 20101017, end: 20121022
  14. ZOFRAN [Concomitant]
     Active Substance: ONDANSETRON HYDROCHLORIDE
     Indication: PROPHYLAXIS OF NAUSEA AND VOMITING
     Dosage: NOT REPORTED, NOT REPORTED
     Dates: start: 20121031
  15. TYLENOL/00020001/ [Concomitant]
     Indication: HEADACHE
     Dosage: NOT REPORTED, NOT REPORTED
     Dates: start: 20121031, end: 20121031
  16. METOCLOPRAMIDE. [Concomitant]
     Active Substance: METOCLOPRAMIDE
     Indication: NAUSEA
     Dosage: NOT REPORTED, NOT REPORTED
     Dates: start: 20121113, end: 20121114
  17. HYDROMORPHONE [Concomitant]
     Active Substance: HYDROMORPHONE
     Indication: PAIN
     Dosage: NOT REPORTED, NOT REPORTED
     Dates: start: 20121112, end: 20121114
  18. ACETAMINOPHEN. [Concomitant]
     Active Substance: ACETAMINOPHEN
     Dosage: NOT REPORTED, NOT REPORTED
     Dates: start: 20121031, end: 20121121
  19. PREDNISONE. [Suspect]
     Active Substance: PREDNISONE
     Indication: B-CELL LYMPHOMA
     Dosage: 100 MG, EVERY 3 WEEKS
     Route: 048
     Dates: start: 20121031
  20. AMOXICILLIN. [Concomitant]
     Active Substance: AMOXICILLIN
     Indication: INFECTION PROPHYLAXIS
     Dosage: NOT REPORTED, NOT REPORTED
     Dates: start: 20121113, end: 20121114
  21. SEPTRA [Concomitant]
     Active Substance: SULFAMETHOXAZOLE\TRIMETHOPRIM
     Indication: INFECTION PROPHYLAXIS
     Dosage: NOT REPORTED, NOT REPORTED
     Dates: start: 20121112, end: 20121112
  22. DILAUDID [Concomitant]
     Active Substance: HYDROMORPHONE HYDROCHLORIDE
     Indication: ARTHRALGIA
     Dosage: NOT REPORTED, NOT REPORTED
     Dates: start: 20121022
  23. PANTOPRAZOLE [Concomitant]
     Active Substance: PANTOPRAZOLE SODIUM
     Indication: GASTROOESOPHAGEAL REFLUX DISEASE
     Dosage: NOT REPORTED, NOT REPORTED
     Dates: start: 20121113, end: 20121114
  24. RO5072759 [Suspect]
     Active Substance: OBINUTUZUMAB
     Indication: B-CELL LYMPHOMA
     Dosage: 1000 ML, CYCLIC: EVERY 3 WEEKS
     Route: 042
     Dates: start: 20121031
  25. ACYCLOVIR /00587301/ [Concomitant]
     Active Substance: ACYCLOVIR
     Indication: INFECTION PROPHYLAXIS
     Dosage: NOT REPORTED, NOT REPORTED
     Dates: start: 20121112, end: 20121112
  26. DOCUSATE SODIUM. [Concomitant]
     Active Substance: DOCUSATE SODIUM
     Indication: CONSTIPATION
     Dosage: UNK
     Dates: start: 20101017
  27. DOCUSATE SODIUM. [Concomitant]
     Active Substance: DOCUSATE SODIUM
     Dosage: UNK
     Dates: start: 20121112, end: 20121114
  28. SENNA /00142201/ [Concomitant]
     Active Substance: SENNA LEAF
     Indication: CONSTIPATION
     Dosage: NOT REPORTED, NOT REPORTED
     Dates: start: 20121112, end: 20121114
  29. ENOXAPARIN [Concomitant]
     Active Substance: ENOXAPARIN
     Dosage: NOT REPORTED, NOT REPORTED
     Dates: start: 20121112, end: 20121112
  30. POTASSIUM PHOSPHATE [Concomitant]
     Active Substance: POTASSIUM PHOSPHATE
     Dosage: UNK
  31. DOXORUBICIN HCL [Suspect]
     Active Substance: DOXORUBICIN HYDROCHLORIDE
     Indication: B-CELL LYMPHOMA
     Dosage: 85 MG, EVERY 3 WEEKS
     Route: 042
     Dates: start: 20121031
  32. POTASSIUM CHLORIDE. [Concomitant]
     Active Substance: POTASSIUM CHLORIDE
     Indication: ELECTROLYTE SUBSTITUTION THERAPY
     Dosage: NOT REPORTED, NOT REPORTED
     Dates: start: 20121113, end: 20121114

REACTIONS (1)
  - Febrile neutropenia [Recovered/Resolved]

NARRATIVE: CASE EVENT DATE: 20121111
